FAERS Safety Report 16752111 (Version 1)
Quarter: 2019Q3

REPORT INFORMATION
  Report Type: Spontaneous
  Country: BE (occurrence: BE)
  Receive Date: 20190828
  Receipt Date: 20190828
  Transmission Date: 20191005
  Serious: Yes (Hospitalization, Disabling)
  Sender: FDA-Public Use
  Company Number: BE-TEVA-2019-BE-1097138

PATIENT
  Age: 53 Year
  Sex: Male
  Weight: 114.5 kg

DRUGS (28)
  1. RANITIDINE EG 300 MG [Concomitant]
     Dosage: AT 9 PM.
     Route: 048
  2. GLUCOPHAGE [Concomitant]
     Active Substance: METFORMIN HYDROCHLORIDE
     Dosage: ONE TABLET AT 8 AM. AND ONE TABLET AT 8 PM.
     Route: 048
  3. FOLAVIT 4 MG [Concomitant]
     Dosage: AT 6 PM.
     Route: 048
  4. TEVAGRASTIM 48 MIU/0.8 ML [Suspect]
     Active Substance: FILGRASTIM
     Dosage: AT 8 PM.
     Route: 058
  5. URSOFALK 250 MG CAPSULES [Concomitant]
     Dosage: AT 8 AM. AND 6 PM.
     Route: 048
  6. BACTRIM FORTE 800+160 MG [Concomitant]
     Dosage: ONE TABLET AT 8 AM. AND ONE TABLET AT 8 PM.
     Route: 048
  7. ZEFFIX 100 MG [Concomitant]
     Active Substance: LAMIVUDINE
     Dosage: AT 8 AM.
     Route: 048
  8. INSULATARD NPH HUMAN [Concomitant]
     Active Substance: INSULIN HUMAN
     Dosage: AT 8 AM.
     Route: 058
  9. DOXYCYCLINE EG 100 MG COMPRIMES [Concomitant]
     Dosage: AT 8 ^O^ IN THE MORNING
     Route: 048
     Dates: end: 20190616
  10. ACICLOVIR MYLAN 800 MG COMPRIME [Concomitant]
     Dosage: EVERY MORNING AT 8 O ^CLOCK
     Route: 048
  11. LORMETAZEPAM EG 1 MG COMPRIMES [Concomitant]
     Dosage: EVERY 24H
     Route: 048
  12. PROMAGNOR 450 MG [Concomitant]
     Dosage: 2 AT 8 AM, 2 AT 12AM AND 2 AT 6 PM.
     Route: 048
  13. PARACODINE 10 MG COMPRIME [Concomitant]
     Dosage: EVERY 6H
     Route: 048
  14. BURINEX 1 MG COMPRIME [Concomitant]
     Dosage: AT 8 O^CLOCK IN THE MORNING
  15. CLEXANE 100 MG/ML, OPLOSSING VOOR INJECTIE [Concomitant]
     Dosage: ONCE AT 8 AM. AND ONCE AT 8 PM.
     Route: 058
  16. MOMETASONE EG [Concomitant]
     Dosage: AT 8 AM. AND AT 6 PM.
  17. NEUPOGEN [Suspect]
     Active Substance: FILGRASTIM
     Route: 065
  18. LITICAN 50 MG COMPRIMES [Concomitant]
     Indication: NAUSEA
     Dosage: EVERY 4H
     Route: 048
  19. MOVICOL SACHET, POWDER FOR ORAL SOLUTION [Concomitant]
     Indication: CONSTIPATION
     Dosage: EVERY 24H
     Route: 048
  20. TRADONAL 50 MG CAPSULES [Concomitant]
     Indication: PAIN
     Dosage: EVERY 4H
  21. VORICONAZOLE ACCORD 200 MG [Concomitant]
     Dosage: AT 8 A.M. AND 6 PM, AT LEAST 2 HOURS AFTER THE MEAL
     Route: 048
  22. DEXERYL CREME [Concomitant]
     Dosage: ONCE AT 8 AM. AND ONCE AT 8 PM.
  23. PROGRAF 0.5 MG CAPSULES [Concomitant]
     Dosage: AT 8 AM.?USED ONLY AFTER HAVING TAKEN A BLOOD SAMPLE
  24. DUOVENT HFA [Concomitant]
     Active Substance: FENOTEROL HYDROBROMIDE\IPRATROPIUM BROMIDE
     Dosage: AT 8 O^CLOCK, 12 O^CLOCK AND 18 O^CLOCK
  25. HUMULINE REGULAR CARTRIDGE [Concomitant]
     Dosage: 300 U/3ML?EVERY DAY: 12 IU AT 08:00, 10 IU AT 12:00, 8 IU AT 18:00
     Route: 058
  26. VORICONAZOLE ACCORD 50 MG [Concomitant]
     Dosage: AT 10 AM. AND 10 PM, AT LEAST 2 HOURS OUTSIDE THE MEAL
     Route: 048
  27. BETAMETHASONE CREAM [Concomitant]
     Indication: RASH PRURITIC
     Dosage: ONE  APPLICATION AT 8 AM. AND ONE TABLET AT 6 PM, MAXIMUM 3/WEEK.
  28. MEDROL 32 MG COMPRIMES [Concomitant]
     Dosage: AT 8 AM.?ALTERNATE SCHEDULE: ONE DAY 0.5 (16MG), THE OTHER DAY 0.75 (24MG)

REACTIONS (2)
  - Oedema peripheral [Recovering/Resolving]
  - Capillary leak syndrome [Recovering/Resolving]

NARRATIVE: CASE EVENT DATE: 20190527
